FAERS Safety Report 20100041 (Version 1)
Quarter: 2021Q4

REPORT INFORMATION
  Report Type: Spontaneous
  Country: US (occurrence: US)
  Receive Date: 20211123
  Receipt Date: 20211123
  Transmission Date: 20220303
  Serious: No
  Sender: FDA-Public Use
  Company Number: US-BAUSCH-BL-2021-037466

PATIENT
  Sex: Female

DRUGS (1)
  1. VYZULTA [Suspect]
     Active Substance: LATANOPROSTENE BUNOD
     Indication: Optic nerve disorder
     Dosage: AT NIGHT
     Route: 047
     Dates: start: 20211019, end: 20211105

REACTIONS (6)
  - Scleral disorder [Recovering/Resolving]
  - Instillation site burn [Recovering/Resolving]
  - Instillation site inflammation [Recovering/Resolving]
  - Instillation site foreign body sensation [Recovering/Resolving]
  - Instillation site pain [Not Recovered/Not Resolved]
  - Inability to afford medication [Unknown]

NARRATIVE: CASE EVENT DATE: 20210101
